FAERS Safety Report 6517514-0 (Version None)
Quarter: 2009Q4

REPORT INFORMATION
  Report Type: 
  Country: None (occurrence: None)
  Receive Date: 20091224
  Receipt Date: 20091216
  Transmission Date: 20100525
  Serious: Yes (Death)
  Sender: FDA-Public Use
  Company Number: GXKR2009CH13563

PATIENT
  Age: 9 Year
  Sex: Male

DRUGS (4)
  1. RIFAMPICIN [Suspect]
     Indication: DISSEMINATED TUBERCULOSIS
     Dosage: 300 MG, (10 MG/KG)
     Route: 048
     Dates: start: 20091024, end: 20091028
  2. ISONIAZID [Interacting]
     Indication: DISSEMINATED TUBERCULOSIS
     Dosage: 300 MG/DAY (10 MG/KG)
     Route: 048
     Dates: start: 20091024, end: 20091028
  3. TIMONIL [Interacting]
     Indication: GRAND MAL CONVULSION
     Dosage: 700 MG/DAY (300-0-400 MG)
     Route: 048
     Dates: end: 20091028
  4. PYRAZINAMIDE [Interacting]
     Indication: DISSEMINATED TUBERCULOSIS
     Dosage: 750 MG/DAY (25 MG/KG)
     Route: 048
     Dates: start: 20091024, end: 20091028

REACTIONS (3)
  - ACUTE HEPATIC FAILURE [None]
  - HEPATIC ENCEPHALOPATHY [None]
  - HEPATOCELLULAR INJURY [None]
